FAERS Safety Report 6943184-3 (Version None)
Quarter: 2010Q3

REPORT INFORMATION
  Report Type: 
  Country: None (occurrence: None)
  Receive Date: 20100825
  Receipt Date: 20100825
  Transmission Date: 20110219
  Serious: Yes (Life-Threatening)
  Sender: FDA-Public Use
  Company Number: None

PATIENT
  Age: 58 Year
  Sex: Male
  Weight: 58 kg

DRUGS (1)
  1. PREDNISONE [Suspect]
     Indication: CHEMOTHERAPY
     Dosage: 100 MG EVERY DAY PO
     Route: 048
     Dates: start: 20100417, end: 20100418

REACTIONS (1)
  - PSYCHOTIC DISORDER [None]
